FAERS Safety Report 24451108 (Version 1)
Quarter: 2024Q4

REPORT INFORMATION
  Report Type: Spontaneous
  Country: US (occurrence: None)
  Receive Date: 20241017
  Receipt Date: 20241017
  Transmission Date: 20250115
  Serious: Yes (Hospitalization)
  Sender: Public
  Company Number: None

PATIENT
  Sex: Female

DRUGS (10)
  1. AZATHIOPRINE [Suspect]
     Active Substance: AZATHIOPRINE
     Indication: Renal transplant
     Route: 048
     Dates: start: 20240906
  2. AZATHIOPRINE TAB 75MG [Concomitant]
  3. CARVEDILOL TAB 12.5MG [Concomitant]
  4. CARVEDILOL TAB 25MG [Concomitant]
  5. CLONIDINE TAB 0.1 MG [Concomitant]
  6. FUROSEMIDE [Concomitant]
     Active Substance: FUROSEMIDE
  7. FUROSEMIDE [Concomitant]
     Active Substance: FUROSEMIDE
  8. IRON TAB 325MG [Concomitant]
  9. NULOJIX [Concomitant]
     Active Substance: BELATACEPT
  10. PRAZOSI N HCL CAP 2MG [Concomitant]

REACTIONS (2)
  - Therapy interrupted [None]
  - Dialysis [None]
